FAERS Safety Report 13910252 (Version 1)
Quarter: 2017Q3

REPORT INFORMATION
  Report Type: Spontaneous
  Country: NL (occurrence: NL)
  Receive Date: 20170828
  Receipt Date: 20170828
  Transmission Date: 20171127
  Serious: Yes (Hospitalization)
  Sender: FDA-Public Use
  Company Number: NL-009507513-1708NLD010913

PATIENT
  Age: 92 Year
  Sex: Female
  Weight: 52 kg

DRUGS (9)
  1. DIVISUN [Concomitant]
     Dosage: 1DD800IE
     Route: 048
  2. LANOXIN PG [Concomitant]
     Dosage: 1DD0.0625MG
     Route: 048
  3. ACENOCOUMAROL [Concomitant]
     Active Substance: ACENOCOUMAROL
     Dosage: UNK
     Route: 048
  4. MOVICOLON [Concomitant]
     Active Substance: POLYETHYLENE GLYCOL 3350\POTASSIUM CHLORIDE\SODIUM BICARBONATE\SODIUM CHLORIDE
     Dosage: UNK
     Route: 048
  5. SOTALOL. [Concomitant]
     Active Substance: SOTALOL
     Dosage: 1DD80MG
     Route: 048
  6. MIRTAZAPINE ORODISPERGEERBARE TABLETTEN [Suspect]
     Active Substance: MIRTAZAPINE
     Indication: DEPRESSED MOOD
     Dosage: UNK
     Route: 048
     Dates: start: 20161214, end: 20161223
  7. BUMETANIDE. [Concomitant]
     Active Substance: BUMETANIDE
     Dosage: 1DD1MG
     Route: 048
  8. CALCIUM CARBONATE (+) CHOLECALCIFEROL [Concomitant]
     Active Substance: CALCIUM CARBONATE\CHOLECALCIFEROL
     Dosage: 1DD
     Route: 048
  9. CINACALCET HYDROCHLORIDE [Concomitant]
     Active Substance: CINACALCET HYDROCHLORIDE
     Dosage: 1DD30MG
     Route: 048

REACTIONS (4)
  - Hallucination [Recovered/Resolved]
  - Psychotic disorder [Recovered/Resolved]
  - Panic attack [Recovered/Resolved]
  - Anxiety [Recovered/Resolved]

NARRATIVE: CASE EVENT DATE: 20161218
